FAERS Safety Report 8949805 (Version 1)
Quarter: 2012Q4

REPORT INFORMATION
  Report Type: 
  Country: CN (occurrence: CN)
  Receive Date: 20121206
  Receipt Date: 20121206
  Transmission Date: 20130627
  Serious: Yes (Other)
  Sender: FDA-Public Use
  Company Number: CN-ROCHE-1160357

PATIENT
  Age: 69 Year
  Sex: Female

DRUGS (5)
  1. ACTILYSE [Suspect]
     Indication: ISCHAEMIC STROKE
     Route: 042
  2. METFORMIN [Concomitant]
  3. INSULIN [Concomitant]
  4. NIFEDIPINE [Concomitant]
  5. ENALAPRIL [Concomitant]

REACTIONS (2)
  - Cerebral haemorrhage [Unknown]
  - Brain herniation [Unknown]
